FAERS Safety Report 24014279 (Version 2)
Quarter: 2024Q3

REPORT INFORMATION
  Report Type: Spontaneous
  Country: IT (occurrence: IT)
  Receive Date: 20240626
  Receipt Date: 20240715
  Transmission Date: 20241016
  Serious: Yes (Life-Threatening, Hospitalization, Other)
  Sender: AUROBINDO
  Company Number: IT-MINISAL02-990804

PATIENT
  Age: 80 Year
  Sex: Male

DRUGS (12)
  1. LENALIDOMIDE [Suspect]
     Active Substance: LENALIDOMIDE
     Indication: Plasma cell myeloma
     Dosage: 5 MILLIGRAM, DAILY (5 MG/DAY FOR 21 DAYS)
     Route: 048
     Dates: start: 20221104
  2. DARZALEX [Suspect]
     Active Substance: DARATUMUMAB
     Indication: Plasma cell myeloma
     Dosage: 1800 MILLIGRAM (1800 MG SC ON DAYS 1-8-15-2228 DAY CYCLE)
     Route: 058
     Dates: start: 20221104
  3. DILTIAZEM HYDROCHLORIDE [Concomitant]
     Active Substance: DILTIAZEM HYDROCHLORIDE
     Indication: Hypertension
     Dosage: 90 MILLIGRAM (HALF A TABLET X 3 / DAY)
     Route: 048
  4. ELIQUIS [Concomitant]
     Active Substance: APIXABAN
     Indication: Thrombosis prophylaxis
     Dosage: 5 MILLIGRAM, ONCE A DAY (2.5 MG X 2 /DAY)
     Route: 048
  5. PALEXIA [Concomitant]
     Active Substance: TAPENTADOL HYDROCHLORIDE
     Indication: Pain management
     Dosage: 50 MILLIGRAM, ONCE A DAY (25 MG2 TABLETS PER DAY)
     Route: 048
  6. HUMALOG [Concomitant]
     Active Substance: INSULIN LISPRO
     Indication: Diabetes mellitus
     Dosage: UNK
     Route: 058
  7. LEVOTHYROXINE SODIUM [Concomitant]
     Active Substance: LEVOTHYROXINE SODIUM
     Indication: Hypothyroidism
     Dosage: 125 MICROGRAM (125 MCG1 TABLET 7 HOURS)
     Route: 048
  8. BACTRIM [Concomitant]
     Active Substance: SULFAMETHOXAZOLE\TRIMETHOPRIM
     Indication: Antibiotic prophylaxis
     Dosage: UNK (1 TABLET X 3 TIMES A WEEK)
     Route: 048
  9. NORVASC [Concomitant]
     Active Substance: AMLODIPINE BESYLATE
     Indication: Hypertension
     Dosage: 5 MILLIGRAM (5 MG1 TABLET 8PM)
     Route: 048
  10. ZOVIRAX [Concomitant]
     Active Substance: ACYCLOVIR
     Indication: Antiviral prophylaxis
     Dosage: 400 MILLIGRAM, ONCE A DAY
     Route: 048
  11. FUROSEMIDE [Concomitant]
     Active Substance: FUROSEMIDE
     Indication: Hypertension
     Dosage: 75 MILLIGRAM (25 MG2 TABLETS AT 8 AM + 1 TABLET AT 3 PM)
     Route: 048
  12. ATENOLOL [Concomitant]
     Active Substance: ATENOLOL
     Indication: Hypertension
     Dosage: 50 MILLIGRAM (100 MG HALF A TABLET AT 8 AM)
     Route: 048

REACTIONS (1)
  - Squamous cell carcinoma of skin [Not Recovered/Not Resolved]

NARRATIVE: CASE EVENT DATE: 20230801
